FAERS Safety Report 14536244 (Version 1)
Quarter: 2018Q1

REPORT INFORMATION
  Report Type: Spontaneous
  Country: HR (occurrence: HR)
  Receive Date: 20180215
  Receipt Date: 20180215
  Transmission Date: 20180509
  Serious: Yes (Life-Threatening)
  Sender: FDA-Public Use
  Company Number: HR-TEVA-2018-HR-856838

PATIENT
  Age: 15 Year
  Sex: Female
  Weight: 60 kg

DRUGS (9)
  1. LEXAURIN [Suspect]
     Active Substance: BROMAZEPAM
     Dosage: 1-2 TABLETS
     Route: 048
     Dates: start: 20171130
  2. CARVETREND [Suspect]
     Active Substance: CARVEDILOL
     Dosage: 1-2 TABLETS
     Route: 048
     Dates: start: 20171130
  3. HEFEROL [Suspect]
     Active Substance: FERROUS FUMARATE
     Dosage: 1-2 TABLETS
     Route: 048
     Dates: start: 20171130
  4. SPASMEX (TROSPIUM CHLORIDE) [Suspect]
     Active Substance: TROSPIUM CHLORIDE
     Dosage: 1-2 TABLETS
     Route: 048
     Dates: start: 20171130
  5. HYGROTON [Suspect]
     Active Substance: CHLORTHALIDONE
     Dosage: 1-2 TABLETS X 25MG
     Route: 048
     Dates: start: 20171130
  6. LORDIAR [Suspect]
     Active Substance: LOPERAMIDE
     Dosage: 1-2 TABLETS
     Route: 048
     Dates: start: 20171130
  7. PLIBEX (VITAMINS) [Suspect]
     Active Substance: VITAMINS
     Dosage: 1-2 TABLETS
     Route: 048
     Dates: start: 20171130
  8. DIOVAN [Suspect]
     Active Substance: VALSARTAN
     Dosage: 1-2 TABLETS X 80MG
     Route: 048
     Dates: start: 20171130
  9. LETIZEN [Suspect]
     Active Substance: CETIRIZINE HYDROCHLORIDE
     Dosage: 1-2 TABLETS
     Route: 048
     Dates: start: 20171130

REACTIONS (3)
  - Suicide attempt [Unknown]
  - No adverse event [Unknown]
  - Intentional overdose [Unknown]

NARRATIVE: CASE EVENT DATE: 20171130
